FAERS Safety Report 6145135-0 (Version None)
Quarter: 2009Q2

REPORT INFORMATION
  Report Type: 
  Country: None (occurrence: None)
  Receive Date: 20090406
  Receipt Date: 20090331
  Transmission Date: 20091009
  Serious: Yes (Death, Hospitalization)
  Sender: FDA-Public Use
  Company Number: DE-AVENTIS-200811259DE

PATIENT
  Age: 75 Year
  Sex: Male
  Weight: 91 kg

DRUGS (7)
  1. DOCETAXEL [Suspect]
     Route: 042
     Dates: start: 20080429, end: 20080429
  2. LISINOPRIL [Concomitant]
     Indication: HYPERTENSION
     Dosage: DOSE: 1-0-0.5
     Route: 048
  3. BISOPROLOL [Concomitant]
     Indication: HYPERTENSION
     Route: 048
  4. TRANSTEC [Concomitant]
     Indication: ANALGESIA
     Route: 062
  5. DEXAMETHASONE TAB [Concomitant]
     Indication: PROPHYLAXIS
     Dosage: DOSE: NOT REPORTED
  6. ANTIEMETICS AND ANTINAUSEANTS [Concomitant]
     Indication: DRUG USE FOR UNKNOWN INDICATION
     Dosage: DOSE: NOT REPORTED
  7. LHRH [Concomitant]
     Indication: DRUG USE FOR UNKNOWN INDICATION
     Dosage: DOSE: NOT REPORTED

REACTIONS (10)
  - ABDOMINAL PAIN [None]
  - BACK PAIN [None]
  - CHILLS [None]
  - CONSTIPATION [None]
  - GENERAL PHYSICAL HEALTH DETERIORATION [None]
  - LEUKOPENIA [None]
  - PANCREATITIS [None]
  - PNEUMONIA ASPIRATION [None]
  - SLEEP DISORDER [None]
  - SUBILEUS [None]
